FAERS Safety Report 5576726-3 (Version None)
Quarter: 2007Q4

REPORT INFORMATION
  Report Type: 
  Country: None (occurrence: None)
  Receive Date: 20071228
  Receipt Date: 20071217
  Transmission Date: 20080405
  Serious: Yes (Hospitalization)
  Sender: FDA-Public Use
  Company Number: JP-AMGEN-US173642

PATIENT
  Sex: Female
  Weight: 84 kg

DRUGS (15)
  1. ENBREL [Suspect]
     Indication: RHEUMATOID ARTHRITIS
     Route: 058
     Dates: start: 20050712
  2. ALFAROL [Concomitant]
     Route: 048
  3. SELBEX [Concomitant]
     Route: 048
  4. MUCOSOLVAN [Concomitant]
     Route: 048
  5. BLOPRESS [Concomitant]
     Route: 048
  6. ASPIRIN [Concomitant]
     Route: 048
  7. NORVASC [Concomitant]
     Route: 048
  8. ERYTHROCIN [Concomitant]
     Route: 048
  9. MOBIC [Concomitant]
     Indication: RHEUMATOID ARTHRITIS
     Route: 048
  10. RISEDRONATE SODIUM [Concomitant]
     Dosage: UNKNOWN
     Route: 048
  11. MONTELUKAST SODIUM [Concomitant]
     Dosage: UNKNOWN
     Route: 048
  12. TAKEPRON [Concomitant]
     Route: 048
  13. ZOLPIDEM TARTRATE [Concomitant]
     Dosage: UNKNOWN
     Route: 048
  14. SALIGREN [Concomitant]
     Dosage: UNKNOWN
     Route: 048
  15. SULFASALAZINE [Concomitant]
     Indication: RHEUMATOID ARTHRITIS
     Route: 048
     Dates: start: 19950801, end: 20050920

REACTIONS (1)
  - INTESTINAL ISCHAEMIA [None]
